FAERS Safety Report 4394110-5 (Version None)
Quarter: 2004Q3

REPORT INFORMATION
  Report Type: 
  Country: None (occurrence: None)
  Receive Date: 20040705
  Receipt Date: 20040628
  Transmission Date: 20050211
  Serious: Yes (Other)
  Sender: FDA-Public Use
  Company Number: 200310801BCA

PATIENT
  Sex: Female

DRUGS (19)
  1. GAMIMUNE N 10% [Suspect]
     Dosage: 60 G, TOTAL DAILY, INTRAVENOUS; SEE IMAGE
     Route: 042
     Dates: start: 20030303
  2. GAMIMUNE N 10% [Suspect]
     Dosage: 60 G, TOTAL DAILY, INTRAVENOUS; SEE IMAGE
     Route: 042
     Dates: start: 20030317
  3. GAMIMUNE N 10% [Suspect]
     Dosage: 60 G, TOTAL DAILY, INTRAVENOUS; SEE IMAGE
     Route: 042
     Dates: start: 20030331
  4. GAMIMUNE N 10% [Suspect]
     Dosage: 60 G, TOTAL DAILY, INTRAVENOUS; SEE IMAGE
     Route: 042
     Dates: start: 20030414
  5. GAMIMUNE N 10% [Suspect]
     Dosage: 60 G, TOTAL DAILY, INTRAVENOUS; SEE IMAGE
     Route: 042
     Dates: start: 20030428
  6. GAMIMUNE N 10% [Suspect]
     Dosage: 60 G, TOTAL DAILY, INTRAVENOUS; SEE IMAGE
     Route: 042
     Dates: start: 20030512
  7. GAMIMUNE N 10% [Suspect]
     Dosage: 60 G, TOTAL DAILY, INTRAVENOUS; SEE IMAGE
     Route: 042
     Dates: start: 20030526
  8. GAMIMUNE N 10% [Suspect]
     Dosage: 60 G, TOTAL DAILY, INTRAVENOUS; SEE IMAGE
     Route: 042
     Dates: start: 20030609
  9. GAMIMUNE N 10% [Suspect]
     Dosage: 60 G, TOTAL DAILY, INTRAVENOUS; SEE IMAGE
     Route: 042
     Dates: start: 20030623
  10. GAMIMUNE N [Suspect]
  11. GAMIMUNE N [Suspect]
  12. GAMIMUNE N [Suspect]
  13. GAMIMUNE N [Suspect]
  14. GAMIMUNE N [Suspect]
  15. GAMIMUNE N [Suspect]
  16. GAMIMUNE N [Suspect]
  17. GAMIMUNE N [Suspect]
  18. GAMIMUNE N [Suspect]
  19. GAMIMUNE N [Suspect]

REACTIONS (4)
  - CYTOMEGALOVIRUS TEST POSITIVE [None]
  - DRUG EXPOSURE DURING PREGNANCY [None]
  - HTLV-2 ANTIBODY POSITIVE [None]
  - SYPHILIS TEST POSITIVE [None]
